FAERS Safety Report 4982821-X (Version None)
Quarter: 2006Q2

REPORT INFORMATION
  Report Type: 
  Country: None (occurrence: None)
  Receive Date: 20060425
  Receipt Date: 20060117
  Transmission Date: 20061013
  Serious: Yes (Hospitalization)
  Sender: FDA-Public Use
  Company Number: US-MERCK-0601USA02187

PATIENT
  Age: 32 Year
  Sex: Female
  Weight: 105 kg

DRUGS (7)
  1. VIOXX [Suspect]
     Indication: ARTHRITIS
     Route: 048
     Dates: start: 19990830, end: 20041001
  2. VIOXX [Suspect]
     Indication: OSTEOARTHRITIS
     Route: 048
     Dates: start: 19990830, end: 20041001
  3. FOSAMAX [Concomitant]
     Route: 048
  4. ZOMIG [Concomitant]
     Route: 065
  5. CELEXA [Concomitant]
     Route: 065
  6. CALCIUM (UNSPECIFIED) AND VITAMIN D (UNSPECIFIED) [Concomitant]
     Route: 065
  7. TYLENOL (CAPLET) [Concomitant]
     Route: 065

REACTIONS (6)
  - ARTHROPATHY [None]
  - CARPAL TUNNEL SYNDROME [None]
  - DEEP VEIN THROMBOSIS [None]
  - GALLBLADDER DISORDER [None]
  - HEART RATE IRREGULAR [None]
  - MIGRAINE [None]
